FAERS Safety Report 14133314 (Version 2)
Quarter: 2020Q3

REPORT INFORMATION
  Report Type: Report from Study
  Country: GR (occurrence: GR)
  Receive Date: 20171027
  Receipt Date: 20200715
  Transmission Date: 20201102
  Serious: Yes (Life-Threatening, Hospitalization)
  Sender: FDA-Public Use
  Company Number: GR-ROCHE-2014221

PATIENT
  Age: 80 Year
  Sex: Male
  Weight: 71 kg

DRUGS (12)
  1. GEMCITABINE. [Suspect]
     Active Substance: GEMCITABINE
     Indication: TRANSITIONAL CELL CARCINOMA
     Dosage: AT A DOSE OF 1000 MILLIGRAMS PER SQUARE METER (MG/M^2) BY IV INFUSION ON DAY 1 AND DAY 8 OF EACH 21?
     Route: 042
     Dates: start: 20161129
  2. KERLONE [Concomitant]
     Active Substance: BETAXOLOL HYDROCHLORIDE
     Indication: HYPERTENSION
     Route: 048
     Dates: start: 2000
  3. DEXAMETHASONE. [Concomitant]
     Active Substance: DEXAMETHASONE
     Indication: PROPHYLAXIS
     Route: 042
     Dates: start: 20161220
  4. PRAVAFENIX [Concomitant]
     Active Substance: FENOFIBRATE\PRAVASTATIN
     Indication: HYPERLIPIDAEMIA
     Route: 048
     Dates: start: 2000
  5. ATEZOLIZUMAB. [Suspect]
     Active Substance: ATEZOLIZUMAB
     Indication: TRANSITIONAL CELL CARCINOMA
     Dosage: DATE OF MOST RECENT DOSE OF BLINDED ATEZOLIZUMAB 02 OCT 2017
     Route: 042
     Dates: start: 20161129
  6. SINTROM [Concomitant]
     Active Substance: ACENOCOUMAROL
     Indication: ATRIAL FIBRILLATION
     Route: 048
     Dates: start: 2000
  7. IRBESARTAN. [Concomitant]
     Active Substance: IRBESARTAN
     Indication: HYPERTENSION
     Route: 048
     Dates: start: 2000
  8. ONDANSETRON [Concomitant]
     Active Substance: ONDANSETRON
     Indication: PROPHYLAXIS
     Route: 042
     Dates: start: 20161220
  9. AMLOPEN [Concomitant]
     Indication: ATRIAL FIBRILLATION
     Route: 048
     Dates: start: 20171010
  10. DIGOXIN. [Concomitant]
     Active Substance: DIGOXIN
     Route: 048
     Dates: start: 2000, end: 20170830
  11. CARBOPLATIN. [Suspect]
     Active Substance: CARBOPLATIN
     Indication: TRANSITIONAL CELL CARCINOMA
     Dosage: DATE OF MOST RECENT DOSE OF CARBOPLATIN PRIOR TO AE ONSET 03 MAY 2017  (255.6 MG)?AT DOSES TO ACHIEV
     Route: 042
     Dates: start: 20161129
  12. DIGOXIN. [Concomitant]
     Active Substance: DIGOXIN
     Indication: ATRIAL FIBRILLATION
     Route: 048
     Dates: start: 20171010

REACTIONS (2)
  - Bradycardia [Recovered/Resolved]
  - Sinus arrest [Recovered/Resolved]

NARRATIVE: CASE EVENT DATE: 20170925
